FAERS Safety Report 21387389 (Version 1)
Quarter: 2022Q3

REPORT INFORMATION
  Report Type: Report from Study
  Country: DE (occurrence: DE)
  Receive Date: 20220928
  Receipt Date: 20220928
  Transmission Date: 20221027
  Serious: Yes (Other)
  Sender: FDA-Public Use
  Company Number: DE-NOVARTISPH-NVSC2022DE217695

PATIENT
  Age: 39 Year
  Sex: Female

DRUGS (2)
  1. MEKINIST [Suspect]
     Active Substance: TRAMETINIB DIMETHYL SULFOXIDE
     Indication: Malignant melanoma
     Dosage: UNK
     Route: 065
     Dates: start: 202109, end: 202201
  2. TAFINLAR [Suspect]
     Active Substance: DABRAFENIB MESYLATE
     Indication: Malignant melanoma
     Dosage: UNK
     Route: 065
     Dates: start: 202109, end: 202201

REACTIONS (14)
  - Illness [Unknown]
  - Melanoma recurrent [Recovered/Resolved]
  - Colitis [Unknown]
  - Fear of death [Unknown]
  - Lymphoedema [Unknown]
  - Swelling [Unknown]
  - Depressed mood [Unknown]
  - Fear [Unknown]
  - Anxiety [Unknown]
  - Malaise [Unknown]
  - Pyrexia [Unknown]
  - Decreased appetite [Unknown]
  - Arthralgia [Unknown]
  - Fatigue [Unknown]
